FAERS Safety Report 10268887 (Version 2)
Quarter: 2014Q2

REPORT INFORMATION
  Report Type: Report from Study
  Country: US (occurrence: US)
  Receive Date: 20140630
  Receipt Date: 20140630
  Transmission Date: 20141212
  Serious: Yes (Other)
  Sender: FDA-Public Use
  Company Number: US-ABBVIE-11P-163-0701402-00

PATIENT
  Age: 43 Year
  Sex: Female

DRUGS (2)
  1. KALETRA TABLETS [Suspect]
     Indication: ANTIRETROVIRAL THERAPY
     Dates: start: 20101130
  2. COMBIVIR [Suspect]
     Indication: ANTIRETROVIRAL THERAPY
     Route: 048
     Dates: start: 20101230

REACTIONS (2)
  - Abortion spontaneous [Unknown]
  - Premature rupture of membranes [Unknown]
